FAERS Safety Report 16780136 (Version 1)
Quarter: 2019Q3

REPORT INFORMATION
  Report Type: Other
  Country: CA (occurrence: CA)
  Receive Date: 20190906
  Receipt Date: 20190906
  Transmission Date: 20191005
  Serious: Yes (Other)
  Sender: FDA-Public Use
  Company Number: CA-PFIZER INC-2019386455

PATIENT

DRUGS (3)
  1. CLARITHROMYCIN. [Suspect]
     Active Substance: CLARITHROMYCIN
     Dosage: UNK
     Route: 065
  2. RIFABUTIN. [Suspect]
     Active Substance: RIFABUTIN
     Dosage: UNK
     Route: 065
  3. COTRIMOXAZOLE [Suspect]
     Active Substance: SULFAMETHOXAZOLE\TRIMETHOPRIM
     Dosage: UNK
     Route: 065

REACTIONS (1)
  - Stevens-Johnson syndrome [Unknown]
